FAERS Safety Report 12144336 (Version 1)
Quarter: 2016Q1

REPORT INFORMATION
  Report Type: Spontaneous
  Country: US (occurrence: US)
  Receive Date: 20160304
  Receipt Date: 20160304
  Transmission Date: 20160526
  Serious: Yes (Other)
  Sender: FDA-Public Use
  Company Number: US-ASTRAZENECA-2016SE21685

PATIENT
  Age: 71 Year
  Sex: Female
  Weight: 68 kg

DRUGS (16)
  1. CYMBALTA [Concomitant]
     Active Substance: DULOXETINE HYDROCHLORIDE
     Route: 048
  2. XARELTO [Concomitant]
     Active Substance: RIVAROXABAN
     Indication: ATRIAL FIBRILLATION
     Route: 048
     Dates: start: 2011
  3. HYDROCHLOROTHIAZIDE. [Concomitant]
     Active Substance: HYDROCHLOROTHIAZIDE
     Route: 048
     Dates: end: 201511
  4. LEVIMIR INSULIN [Concomitant]
  5. LAMOTRIGINE. [Concomitant]
     Active Substance: LAMOTRIGINE
     Indication: SEIZURE
     Route: 048
     Dates: start: 2011
  6. HYDROCHLOROTHIAZIDE. [Concomitant]
     Active Substance: HYDROCHLOROTHIAZIDE
     Route: 048
     Dates: start: 201511
  7. DESLORATADINE. [Concomitant]
     Active Substance: DESLORATADINE
     Indication: MULTIPLE ALLERGIES
     Route: 048
     Dates: start: 2011
  8. CRESTOR [Suspect]
     Active Substance: ROSUVASTATIN CALCIUM
     Dosage: ON MONDAY AND FRIDAYS ONLY IN JAN-2015
     Route: 048
     Dates: start: 201501, end: 201507
  9. CRESTOR [Suspect]
     Active Substance: ROSUVASTATIN CALCIUM
     Dosage: MONDAY THROUGH FRIDAY ONLY
     Route: 048
     Dates: start: 201511, end: 20160212
  10. XARELTO [Concomitant]
     Active Substance: RIVAROXABAN
     Indication: TRANSIENT ISCHAEMIC ATTACK
     Route: 048
     Dates: start: 2011
  11. BABY ASPIRIN [Concomitant]
     Active Substance: ASPIRIN
     Route: 048
     Dates: start: 2011
  12. CRESTOR [Suspect]
     Active Substance: ROSUVASTATIN CALCIUM
     Dosage: ON MONDAY, WEDNESDAY AND FRIDAY
     Route: 048
     Dates: start: 201507, end: 201511
  13. LANTUS [Concomitant]
     Active Substance: INSULIN GLARGINE
  14. BYSTOLIC [Concomitant]
     Active Substance: NEBIVOLOL HYDROCHLORIDE
     Indication: HYPERTENSION
     Route: 048
  15. NOVALOG [Concomitant]
     Indication: ILL-DEFINED DISORDER
  16. CYMBALTA [Concomitant]
     Active Substance: DULOXETINE HYDROCHLORIDE
     Route: 048
     Dates: end: 20160212

REACTIONS (6)
  - Depressed mood [Recovered/Resolved]
  - Hypersomnia [Recovered/Resolved]
  - Foot fracture [Unknown]
  - Malaise [Recovered/Resolved]
  - Balance disorder [Unknown]
  - Intentional product misuse [Unknown]

NARRATIVE: CASE EVENT DATE: 2015
